FAERS Safety Report 14816595 (Version 1)
Quarter: 2018Q2

REPORT INFORMATION
  Report Type: Spontaneous
  Country: ES (occurrence: ES)
  Receive Date: 20180426
  Receipt Date: 20180426
  Transmission Date: 20180711
  Serious: Yes (Other)
  Sender: FDA-Public Use
  Company Number: ES-PFIZER INC-2018104366

PATIENT
  Age: 81 Year
  Sex: Female

DRUGS (6)
  1. TRANKIMAZIN [Interacting]
     Active Substance: ALPRAZOLAM
     Indication: NERVOUSNESS
     Dosage: 0.5 MG, (15:00 H: TRANKIMAZIN 0,5 MG 1,5 TABLETS ; 22:00 H: TRANKIMAZIN 0.5 MG, 2 TABLETS)
     Route: 048
     Dates: start: 20170718
  2. TRANKIMAZIN [Interacting]
     Active Substance: ALPRAZOLAM
     Dosage: 0.25 MG ONCE DAILY (HALF TABLET OF 0.5 MG) PLUS ONE EXTRA DOSE
     Dates: start: 20180215
  3. QUETIAPINA ALTER [Interacting]
     Active Substance: QUETIAPINE FUMARATE
     Indication: DEPRESSION
     Dosage: 50 MG, 1X/DAY (2 TABLETS OF 25 MG BEFORE GOING TO BED)
     Dates: start: 201707
  4. QUETIAPINA ALTER [Interacting]
     Active Substance: QUETIAPINE FUMARATE
     Dosage: 25 MG, 3X/DAY (ONE TABLET 25 MG, AT 16:50 H; ANOTHER ONE AT 18:50 H AND ANOTHER ONE AT 21H)
     Route: 048
     Dates: start: 20170718
  5. TRANKIMAZIN [Suspect]
     Active Substance: ALPRAZOLAM
     Indication: DEPRESSION
     Dosage: 0.25 MG, 1X/DAY (HALF TABLET OF 0.5 MG)
     Dates: start: 201707
  6. QUETIAPINA ALTER [Interacting]
     Active Substance: QUETIAPINE FUMARATE
     Dosage: 50 MG, 1X/DAY (2 TABLETS OF 25MG) PLUS ONE EXTRA DOSE)
     Dates: start: 20180215

REACTIONS (6)
  - Periodic limb movement disorder [Unknown]
  - Loss of consciousness [Not Recovered/Not Resolved]
  - Hypersomnia [Not Recovered/Not Resolved]
  - Inappropriate schedule of drug administration [Not Recovered/Not Resolved]
  - Extra dose administered [Not Recovered/Not Resolved]
  - Drug interaction [Not Recovered/Not Resolved]

NARRATIVE: CASE EVENT DATE: 20180215
